FAERS Safety Report 18156496 (Version 2)
Quarter: 2020Q3

REPORT INFORMATION
  Report Type: Spontaneous
  Country: US (occurrence: US)
  Receive Date: 20200817
  Receipt Date: 20200908
  Transmission Date: 20201103
  Serious: No
  Sender: FDA-Public Use
  Company Number: US-PFIZER INC-2020315347

PATIENT
  Age: 80 Year
  Sex: Female
  Weight: 48.53 kg

DRUGS (3)
  1. FASLODEX [Concomitant]
     Active Substance: FULVESTRANT
     Dosage: UNK
  2. IBRANCE [Suspect]
     Active Substance: PALBOCICLIB
     Indication: NEOPLASM MALIGNANT
     Dosage: 125 MG, CYCLIC (21 DAYS, THEN OFF FOR A WEEK)
     Route: 048
     Dates: start: 20200809
  3. XGEVA [Concomitant]
     Active Substance: DENOSUMAB
     Indication: BONE DISORDER
     Dosage: UNK UNK, MONTHLY

REACTIONS (2)
  - Diarrhoea [Unknown]
  - Aphonia [Unknown]

NARRATIVE: CASE EVENT DATE: 2020
